FAERS Safety Report 4299456-7 (Version None)
Quarter: 2004Q1

REPORT INFORMATION
  Report Type: 
  Country: None (occurrence: None)
  Receive Date: 20040217
  Receipt Date: 20040129
  Transmission Date: 20041129
  Serious: Yes (Hospitalization)
  Sender: FDA-Public Use
  Company Number: 189485

PATIENT
  Age: 50 Year
  Sex: Female
  Weight: 61.2356 kg

DRUGS (6)
  1. AVONEX [Suspect]
     Indication: MULTIPLE SCLEROSIS
     Dosage: 30 MCG QW IM
     Route: 030
     Dates: start: 20030501, end: 20030101
  2. AVONEX [Suspect]
     Indication: MULTIPLE SCLEROSIS
     Dosage: 30 MCG QW IM
     Route: 030
     Dates: start: 20030101
  3. NOVANTRONE ^LEDERLE^ [Concomitant]
  4. BACLOFEN [Concomitant]
  5. TEGRETOL [Concomitant]
  6. CLONAZEPAM [Concomitant]

REACTIONS (3)
  - INFECTION [None]
  - INFLUENZA [None]
  - URINARY TRACT INFECTION [None]
